FAERS Safety Report 10031572 (Version 1)
Quarter: 2014Q1

REPORT INFORMATION
  Report Type: Spontaneous
  Country: FR (occurrence: FR)
  Receive Date: 20140324
  Receipt Date: 20140324
  Transmission Date: 20141002
  Serious: Yes (Hospitalization)
  Sender: FDA-Public Use
  Company Number: FR-NOVOPROD-403402

PATIENT
  Age: 38 Year
  Sex: Female

DRUGS (7)
  1. VICTOZA [Suspect]
     Indication: TYPE 2 DIABETES MELLITUS
     Dosage: 1.8 MG, QD
     Route: 058
     Dates: start: 201210, end: 20131213
  2. STAGID [Concomitant]
     Dosage: UNK
  3. DIAMICRON [Concomitant]
     Dosage: UNK
  4. LIPANOR [Concomitant]
     Dosage: UNK
  5. SEROPLEX [Concomitant]
     Dosage: UNK
  6. XANAX [Concomitant]
     Dosage: UNK
     Route: 065
  7. DUPHASTON [Concomitant]
     Dosage: UNK
     Route: 065

REACTIONS (5)
  - Lipase increased [Recovered/Resolved]
  - Gastrointestinal motility disorder [Unknown]
  - Hyperthermia [Unknown]
  - Abdominal pain upper [Recovered/Resolved]
  - Nausea [Unknown]
